FAERS Safety Report 6865828-7 (Version None)
Quarter: 2010Q3

REPORT INFORMATION
  Report Type: 
  Country: None (occurrence: None)
  Receive Date: 20100720
  Receipt Date: 20100709
  Transmission Date: 20110219
  Serious: Yes (Other)
  Sender: FDA-Public Use
  Company Number: 015429

PATIENT
  Sex: Male

DRUGS (3)
  1. VIMPAT [Suspect]
     Dosage: 50 MG BID, 100 MG BID
     Dates: start: 20100601
  2. VALPROIC ACID [Concomitant]
  3. LAMOTRIGINE [Concomitant]

REACTIONS (3)
  - DIZZINESS [None]
  - FALL [None]
  - OPEN WOUND [None]
